FAERS Safety Report 9313603 (Version 1)
Quarter: 2013Q2

REPORT INFORMATION
  Report Type: Spontaneous
  Country: US (occurrence: US)
  Receive Date: 20130528
  Receipt Date: 20130528
  Transmission Date: 20140414
  Serious: Yes (Hospitalization)
  Sender: FDA-Public Use
  Company Number: US-B.I. PHARMACEUTICALS,INC./RIDGEFIELD-2013-BI-14178BP

PATIENT
  Age: 56 Year
  Sex: Male
  Weight: 81 kg

DRUGS (5)
  1. SPIRIVA [Suspect]
     Indication: CHRONIC OBSTRUCTIVE PULMONARY DISEASE
     Dosage: 18 MCG
     Route: 055
     Dates: start: 2004
  2. ADVAIR [Concomitant]
     Indication: CHRONIC OBSTRUCTIVE PULMONARY DISEASE
     Dosage: 4 PUF
     Route: 055
     Dates: start: 2004
  3. PROAIR [Concomitant]
     Indication: ASTHMA
     Route: 055
     Dates: start: 2004
  4. LOTREL [Concomitant]
     Indication: HYPERTENSION
     Dosage: STRENGTH: 5 MG /20 MG; DAILY DOSE: 5 MG /20 MG
     Route: 048
     Dates: start: 2000
  5. HYTRIN [Concomitant]
     Indication: HYPERTENSION
     Dosage: 5 MG
     Route: 048
     Dates: start: 2000

REACTIONS (1)
  - Pneumonia [Recovered/Resolved]
